FAERS Safety Report 5747625-9 (Version None)
Quarter: 2008Q2

REPORT INFORMATION
  Report Type: 
  Country: None (occurrence: None)
  Receive Date: 20080523
  Receipt Date: 20080522
  Transmission Date: 20081010
  Serious: Yes (Hospitalization)
  Sender: FDA-Public Use
  Company Number: ES-JNJFOC-20080400320

PATIENT
  Age: 73 Year
  Sex: Male
  Weight: 89 kg

DRUGS (9)
  1. PLACEBO [Suspect]
     Route: 042
  2. REMICADE [Suspect]
     Indication: POLYMYALGIA RHEUMATICA
     Route: 042
  3. URBASON [Concomitant]
     Indication: POLYMYALGIA RHEUMATICA
     Route: 048
  4. SPIRIVA [Concomitant]
     Indication: CHRONIC OBSTRUCTIVE PULMONARY DISEASE
     Route: 055
  5. FLUTICASONE [Concomitant]
     Indication: CHRONIC OBSTRUCTIVE PULMONARY DISEASE
     Route: 055
  6. SALMETEROL [Concomitant]
     Indication: CHRONIC OBSTRUCTIVE PULMONARY DISEASE
     Route: 055
  7. CALCIUM [Concomitant]
     Indication: OSTEOPOROSIS PROPHYLAXIS
     Route: 048
  8. VITAMIN D [Concomitant]
     Indication: OSTEOPOROSIS PROPHYLAXIS
     Route: 048
  9. OMEPRAZOLE [Concomitant]
     Indication: ULCER
     Route: 048

REACTIONS (2)
  - PNEUMONIA [None]
  - RESPIRATORY FAILURE [None]
